FAERS Safety Report 4793792-3 (Version None)
Quarter: 2005Q4

REPORT INFORMATION
  Report Type: 
  Country: None (occurrence: None)
  Receive Date: 20051006
  Receipt Date: 20050928
  Transmission Date: 20060501
  Serious: Yes (Other)
  Sender: FDA-Public Use
  Company Number: 2005107522

PATIENT
  Sex: Female

DRUGS (2)
  1. DILANTIN [Suspect]
     Indication: CONVULSION
     Dosage: 400 MG (400 MG, 1 IN 1 D), ORAL
     Route: 048
  2. DEPAKOTE [Concomitant]

REACTIONS (3)
  - CONVULSION [None]
  - FALL [None]
  - TOOTH FRACTURE [None]
